FAERS Safety Report 17252559 (Version 1)
Quarter: 2020Q1

REPORT INFORMATION
  Report Type: Spontaneous
  Country: CA (occurrence: CA)
  Receive Date: 20200109
  Receipt Date: 20200109
  Transmission Date: 20200409
  Serious: Yes (Hospitalization)
  Sender: FDA-Public Use
  Company Number: CA-PFIZER INC-2020008626

PATIENT
  Age: 53 Year
  Sex: Female

DRUGS (1)
  1. DILANTIN [Suspect]
     Active Substance: PHENYTOIN
     Dosage: 500 MG, DAILY (100 MG, 2 CAPSULES IN THE MORNING, 1 CAPSULE AT LUNCH AND 2 CAPSULES AT BEDTIME)
     Dates: start: 201907

REACTIONS (4)
  - Product physical issue [Unknown]
  - Drug level increased [Unknown]
  - Drug level decreased [Unknown]
  - Seizure [Unknown]

NARRATIVE: CASE EVENT DATE: 20191015
